FAERS Safety Report 8444651-6 (Version None)
Quarter: 2012Q2

REPORT INFORMATION
  Report Type: 
  Country: None (occurrence: None)
  Receive Date: 20120611
  Receipt Date: 20120524
  Transmission Date: 20120825
  Serious: Yes (Hospitalization)
  Sender: FDA-Public Use
  Company Number: DSA_57513_2012

PATIENT
  Age: 23 Year
  Sex: Male

DRUGS (2)
  1. ATIVAN [Suspect]
     Indication: DEPRESSION
     Dosage: 1.5 MG, QD
  2. FLUOXETINE [Suspect]
     Indication: DEPRESSION
     Dosage: 10 MG, QD

REACTIONS (4)
  - PUPILLARY REFLEX IMPAIRED [None]
  - ACCOMMODATION DISORDER [None]
  - MYOPIA [None]
  - STRABISMUS [None]
